FAERS Safety Report 20625182 (Version 16)
Quarter: 2022Q4

REPORT INFORMATION
  Report Type: Spontaneous
  Country: GB (occurrence: GB)
  Receive Date: 20220323
  Receipt Date: 20221222
  Transmission Date: 20230113
  Serious: Yes (Other)
  Sender: FDA-Public Use
  Company Number: None

PATIENT
  Age: 44 Year
  Sex: Male

DRUGS (30)
  1. METHYLPHENIDATE HYDROCHLORIDE [Suspect]
     Active Substance: METHYLPHENIDATE HYDROCHLORIDE
     Indication: Product used for unknown indication
     Dosage: UNK ABUSE (UNSPECIFIED, BETWEEN FEBRUARY 2017 AND MAY 2017) PROLONGED-RELEASE TABLET
     Route: 042
     Dates: start: 20170201, end: 20170501
  2. METHYLPHENIDATE HYDROCHLORIDE [Suspect]
     Active Substance: METHYLPHENIDATE HYDROCHLORIDE
     Dosage: UNK, QD
     Route: 065
     Dates: start: 20170201, end: 20170201
  3. METHYLPHENIDATE HYDROCHLORIDE [Suspect]
     Active Substance: METHYLPHENIDATE HYDROCHLORIDE
     Dosage: UNK (ABUSE) PROLONGED-RELEASE TABLET
     Route: 065
     Dates: start: 20170201, end: 20170201
  4. METHYLPHENIDATE HYDROCHLORIDE [Suspect]
     Active Substance: METHYLPHENIDATE HYDROCHLORIDE
     Dosage: UNK ABUSE (UNSPECIFIED, BETWEEN FEBRUARY 2017 AND MAY 2017) PROLONGED-RELEASE TABLET
     Route: 065
     Dates: start: 20170201, end: 20170501
  5. METHYLPHENIDATE HYDROCHLORIDE [Suspect]
     Active Substance: METHYLPHENIDATE HYDROCHLORIDE
     Dosage: UNK (UNSPECIFIED, BETWEEN FEBRUARY 2017 AND MAY 2017) PROLONGED-RELEASE TABLET
     Route: 065
     Dates: start: 20170201, end: 20170501
  6. METHYLPHENIDATE HYDROCHLORIDE [Suspect]
     Active Substance: METHYLPHENIDATE HYDROCHLORIDE
     Dosage: UNK, ABUSE (DOSAGE FORM: UNSPECIFIED, BETWEEN FEBRUARY 2017 AND MAY 2017) PROLONGED-RELEASE TABLET
     Route: 065
     Dates: start: 20170201, end: 20170501
  7. METHYLPHENIDATE HYDROCHLORIDE [Suspect]
     Active Substance: METHYLPHENIDATE HYDROCHLORIDE
     Dosage: UNK, ABUSE (DOSAGE FORM: UNSPECIFIED, BETWEEN FEBRUARY 2017 AND MAY 2017) PROLONGED-RELEASE TABLET
     Route: 065
     Dates: start: 20170201, end: 20170501
  8. METHYLPHENIDATE HYDROCHLORIDE [Suspect]
     Active Substance: METHYLPHENIDATE HYDROCHLORIDE
     Dosage: UNK (ABUSE) PROLONGED-RELEASE TABLET
     Route: 065
     Dates: start: 20170201, end: 20170201
  9. METHYLPHENIDATE HYDROCHLORIDE [Suspect]
     Active Substance: METHYLPHENIDATE HYDROCHLORIDE
     Dosage: UNK ABUSE (DOSAGE FORM: UNSPECIFIED, BETWEEN FEBRUARY 2017 AND MAY 2017) TABLET (UNCOATED)
     Route: 048
     Dates: start: 20170201, end: 20170501
  10. METHYLPHENIDATE HYDROCHLORIDE [Suspect]
     Active Substance: METHYLPHENIDATE HYDROCHLORIDE
     Dosage: UNK (UNSPECIFIED, BETWEEN FEBRUARY 2017 AND MAY 2017),PROLONGED-RELEASE TABLET
     Route: 065
     Dates: start: 20170201, end: 20170501
  11. METHYLPHENIDATE HYDROCHLORIDE [Suspect]
     Active Substance: METHYLPHENIDATE HYDROCHLORIDE
     Dosage: UNK TABLET (UNCOATED, ORAL)
     Route: 048
     Dates: start: 20170201, end: 20170501
  12. METHYLPHENIDATE HYDROCHLORIDE [Suspect]
     Active Substance: METHYLPHENIDATE HYDROCHLORIDE
     Dosage: UNK, QD, TABLET (UNCOATED)
     Route: 048
     Dates: start: 20170201, end: 20170201
  13. METHYLPHENIDATE HYDROCHLORIDE [Suspect]
     Active Substance: METHYLPHENIDATE HYDROCHLORIDE
     Dosage: UNK, (UNSPECIFIED, BETWEEN FEBRUARY 2017 AND MAY 2017)
     Route: 065
     Dates: start: 20170202, end: 20170501
  14. METHYLPHENIDATE HYDROCHLORIDE [Suspect]
     Active Substance: METHYLPHENIDATE HYDROCHLORIDE
     Dosage: UNK, QD, ABUSE (TABLET)
     Route: 065
     Dates: start: 20170201, end: 20170202
  15. PREGABALIN [Suspect]
     Active Substance: PREGABALIN
     Indication: Product used for unknown indication
     Dosage: DOSAGE FORM: UNSPECIFIED, BETWEEN FEBRUARY 2017 AND MAY 2017; CAPSULE HARD
     Route: 065
     Dates: start: 20170201, end: 20170501
  16. PREGABALIN [Suspect]
     Active Substance: PREGABALIN
     Dosage: DOSAGE FORM: UNSPECIFIED, BETWEEN FEBRUARY 2017 AND MAY 2017; PROLONGED-RELEASE TABLET (CAPSULE HARD
     Route: 065
     Dates: start: 20170201, end: 20170501
  17. PREGABALIN [Suspect]
     Active Substance: PREGABALIN
     Dosage: UNK, (BETWEEN FEBRUARY 2017 AND MAY 2017) CAPSULE HARD
     Route: 065
     Dates: start: 20170201, end: 20170201
  18. PREGABALIN [Suspect]
     Active Substance: PREGABALIN
     Dosage: UNK, ABUSE, CAPSULE
     Route: 065
     Dates: start: 201702, end: 201705
  19. PREGABALIN [Suspect]
     Active Substance: PREGABALIN
     Dosage: DOSAGE FORM: UNSPECIFIED, BETWEEN FEBRUARY 2017 AND MAY 2017; CAPSULE HARD
     Route: 065
     Dates: start: 20170201, end: 20170501
  20. PREGABALIN [Suspect]
     Active Substance: PREGABALIN
     Dosage: UNK, DOSAGE FORM: UNSPECIFIED, BETWEEN FEBRUARY 2017 AND MAY 2017;
     Route: 065
     Dates: start: 20170201, end: 20170501
  21. PREGABALIN [Suspect]
     Active Substance: PREGABALIN
     Dosage: UNK (BETWEEN FEBRUARY 2017 AND MAY 2017)
     Route: 065
     Dates: start: 20170201, end: 20170501
  22. PREGABALIN [Suspect]
     Active Substance: PREGABALIN
     Dosage: UNK BETWEEN FEBRUARY 2017 AND MAY 2017 (PROLONGED-RELEASE TABLET); CAPSULE HARD
     Route: 065
     Dates: start: 201702, end: 201705
  23. PREGABALIN [Suspect]
     Active Substance: PREGABALIN
     Dosage: UNK, CAPSULE (BETWEEN FEBRUARY 2017 AND MAY 2017)
     Route: 065
     Dates: start: 20170201, end: 20170201
  24. PREGABALIN [Suspect]
     Active Substance: PREGABALIN
     Dosage: UNK, ABUSE
     Route: 065
     Dates: start: 201702, end: 201705
  25. AMPHETAMINE [Concomitant]
     Active Substance: AMPHETAMINE
     Indication: Drug abuse
     Dosage: UNK
     Route: 065
  26. AMPHETAMINE [Concomitant]
     Active Substance: AMPHETAMINE
     Dosage: UNK
     Route: 065
  27. AMPHETAMINE [Concomitant]
     Active Substance: AMPHETAMINE
     Dosage: UNK
     Route: 065
  28. AMPHETAMINE [Concomitant]
     Active Substance: AMPHETAMINE
     Dosage: UNK
     Route: 065
  29. COCAINE [Concomitant]
     Active Substance: COCAINE
     Indication: Drug abuse
     Dosage: UNK
     Route: 065
  30. COCAINE [Concomitant]
     Active Substance: COCAINE
     Dosage: UNK
     Route: 065

REACTIONS (4)
  - Loss of consciousness [Recovered/Resolved]
  - Drug dependence [Recovered/Resolved]
  - Drug abuse [Recovered/Resolved]
  - Prescription drug used without a prescription [Unknown]
